FAERS Safety Report 12257573 (Version 1)
Quarter: 2016Q2

REPORT INFORMATION
  Report Type: Report from Study
  Country: BR (occurrence: BR)
  Receive Date: 20160412
  Receipt Date: 20160412
  Transmission Date: 20160815
  Serious: Yes (Hospitalization)
  Sender: FDA-Public Use
  Company Number: BR-TEVA-641385ISR

PATIENT
  Age: 35 Year
  Sex: Female

DRUGS (4)
  1. COPAXONE [Suspect]
     Active Substance: GLATIRAMER ACETATE
     Indication: MULTIPLE SCLEROSIS
     Dosage: 20 MILLIGRAM DAILY; COPAXONE 20MG
     Route: 058
     Dates: start: 20160108
  2. EUTHYROX [Concomitant]
     Active Substance: LEVOTHYROXINE SODIUM
     Indication: HYPOTHYROIDISM
     Dates: start: 2000
  3. LITHIUM. [Concomitant]
     Active Substance: LITHIUM
  4. PREGABALIN. [Concomitant]
     Active Substance: PREGABALIN
     Dates: start: 2006

REACTIONS (5)
  - Fatigue [Recovering/Resolving]
  - Chest pain [Recovering/Resolving]
  - Central nervous system lesion [Unknown]
  - Scar [Recovered/Resolved]
  - General symptom [Unknown]

NARRATIVE: CASE EVENT DATE: 20160226
